FAERS Safety Report 24976015 (Version 1)
Quarter: 2025Q1

REPORT INFORMATION
  Report Type: Spontaneous
  Country: JP (occurrence: JP)
  Receive Date: 20250217
  Receipt Date: 20250217
  Transmission Date: 20250409
  Serious: Yes (Other)
  Sender: SLATE RUN
  Company Number: JP-SLATERUN-2025SRLIT00018

PATIENT
  Age: 73 Year
  Sex: Female

DRUGS (3)
  1. IOPAMIDOL [Suspect]
     Active Substance: IOPAMIDOL
     Indication: Aneurysm
     Route: 065
  2. EDARAVONE [Concomitant]
     Active Substance: EDARAVONE
     Indication: Prophylaxis
     Route: 065
  3. ARGATROBAN [Concomitant]
     Active Substance: ARGATROBAN
     Indication: Prophylaxis
     Route: 065

REACTIONS (1)
  - Contrast encephalopathy [Recovering/Resolving]
